FAERS Safety Report 21043506 (Version 1)
Quarter: 2022Q3

REPORT INFORMATION
  Report Type: Spontaneous
  Country: US (occurrence: US)
  Receive Date: 20220705
  Receipt Date: 20220705
  Transmission Date: 20221027
  Serious: No
  Sender: FDA-Public Use
  Company Number: US-SAREPTA THERAPEUTICS INC.-SRP2021-001697

PATIENT
  Age: 16 Year
  Sex: Male

DRUGS (1)
  1. EXONDYS 51 [Suspect]
     Active Substance: ETEPLIRSEN
     Indication: Product used for unknown indication
     Dosage: 2100 MG, WEEKLY
     Route: 042

REACTIONS (3)
  - Dehydration [Unknown]
  - Fatigue [Unknown]
  - Poor venous access [Unknown]

NARRATIVE: CASE EVENT DATE: 20210922
